FAERS Safety Report 18680935 (Version 2)
Quarter: 2021Q4

REPORT INFORMATION
  Report Type: Report from Study
  Country: US (occurrence: US)
  Receive Date: 20201229
  Receipt Date: 20211229
  Transmission Date: 20220303
  Serious: No
  Sender: FDA-Public Use
  Company Number: US-CLOVIS ONCOLOGY-CLO-2020-000993

PATIENT
  Sex: Male

DRUGS (4)
  1. RUBRACA [Suspect]
     Active Substance: RUCAPARIB CAMSYLATE
     Indication: Prostate cancer
     Dosage: 600 MG, BID
     Route: 048
     Dates: start: 20200328
  2. RUBRACA [Suspect]
     Active Substance: RUCAPARIB CAMSYLATE
     Dosage: 600 MG, BID
     Route: 048
     Dates: start: 20200520
  3. METOPROLOL [Suspect]
     Active Substance: METOPROLOL
     Indication: Product used for unknown indication
  4. RADIUM [Concomitant]
     Active Substance: RADIUM
     Indication: Product used for unknown indication
     Dosage: INJECTION

REACTIONS (16)
  - Joint stiffness [Not Recovered/Not Resolved]
  - Liver function test increased [Unknown]
  - Somnolence [Not Recovered/Not Resolved]
  - Bone pain [Unknown]
  - Blood pressure increased [Unknown]
  - Prostatic specific antigen increased [Not Recovered/Not Resolved]
  - Peripheral swelling [Unknown]
  - Headache [Unknown]
  - Flushing [Unknown]
  - Fatigue [Not Recovered/Not Resolved]
  - Photosensitivity reaction [Unknown]
  - Dizziness [Unknown]
  - Haemoglobin decreased [Not Recovered/Not Resolved]
  - Red blood cell count decreased [Unknown]
  - Dyspnoea exertional [Recovering/Resolving]
  - Product dose omission issue [Unknown]

NARRATIVE: CASE EVENT DATE: 20200101
